FAERS Safety Report 4390528-5 (Version None)
Quarter: 2004Q2

REPORT INFORMATION
  Report Type: 
  Country: None (occurrence: None)
  Receive Date: 20040630
  Receipt Date: 20040614
  Transmission Date: 20050107
  Serious: Yes (Hospitalization)
  Sender: FDA-Public Use
  Company Number: DSA_24256_2004

PATIENT
  Age: 68 Year
  Sex: Female
  Weight: 126.1 kg

DRUGS (7)
  1. CARDIZEM LA [Suspect]
     Indication: ATRIAL FLUTTER
     Dosage: 240 MG QD PO
     Route: 048
     Dates: start: 20040401, end: 20040407
  2. CARDIZEM LA [Suspect]
     Indication: ATRIAL FLUTTER
     Dosage: 240 MG BID PO
     Route: 048
     Dates: start: 20040408
  3. LASIX [Concomitant]
  4. K-DUR 10 [Concomitant]
  5. ZOCOR [Concomitant]
  6. ACTINEL [Concomitant]
  7. INHALERS FOR ASTHMA [Concomitant]

REACTIONS (7)
  - ASTHMA [None]
  - CHRONIC OBSTRUCTIVE AIRWAYS DISEASE EXACERBATED [None]
  - CRYING [None]
  - DEPRESSION [None]
  - OEDEMA PERIPHERAL [None]
  - TEARFULNESS [None]
  - TREATMENT NONCOMPLIANCE [None]
